FAERS Safety Report 10762663 (Version 2)
Quarter: 2015Q1

REPORT INFORMATION
  Report Type: Spontaneous
  Country: US (occurrence: US)
  Receive Date: 20150204
  Receipt Date: 20150310
  Transmission Date: 20150721
  Serious: No
  Sender: FDA-Public Use
  Company Number: US-BIOMARINAP-US-2015-105270

PATIENT
  Age: 15 Year
  Sex: Female
  Weight: 141 kg

DRUGS (1)
  1. KUVAN [Suspect]
     Active Substance: SAPROPTERIN DIHYDROCHLORIDE
     Indication: PHENYLKETONURIA
     Dosage: 2800 MG, QD
     Route: 048

REACTIONS (1)
  - Yellow skin [Recovering/Resolving]

NARRATIVE: CASE EVENT DATE: 20150118
